FAERS Safety Report 6169585-1 (Version None)
Quarter: 2009Q2

REPORT INFORMATION
  Report Type: 
  Country: None (occurrence: None)
  Receive Date: 20090428
  Receipt Date: 20090422
  Transmission Date: 20091009
  Serious: Yes (Hospitalization)
  Sender: FDA-Public Use
  Company Number: US-MEDIMMUNE-MEDI-0008065

PATIENT
  Sex: Male
  Weight: 10.76 kg

DRUGS (5)
  1. SYNAGIS [Suspect]
     Indication: PROPHYLAXIS
     Route: 030
     Dates: start: 20081030, end: 20090227
  2. SYNAGIS [Suspect]
     Route: 030
     Dates: start: 20081030
  3. SYNAGIS [Suspect]
     Route: 030
     Dates: start: 20081128
  4. SYNAGIS [Suspect]
     Route: 030
     Dates: start: 20081229
  5. SYNAGIS [Suspect]
     Route: 030
     Dates: start: 20090129

REACTIONS (10)
  - ABSCESS LIMB [None]
  - COUGH [None]
  - DYSPNOEA [None]
  - ERYSIPELAS [None]
  - NASAL CONGESTION [None]
  - OEDEMA PERIPHERAL [None]
  - PAIN IN EXTREMITY [None]
  - PNEUMONIA [None]
  - PYREXIA [None]
  - RASH ERYTHEMATOUS [None]
